APPROVED DRUG PRODUCT: ATENOLOL
Active Ingredient: ATENOLOL
Strength: 100MG
Dosage Form/Route: TABLET;ORAL
Application: A213136 | Product #003 | TE Code: AB
Applicant: UNICHEM LABORATORIES LTD
Approved: Nov 21, 2019 | RLD: No | RS: No | Type: RX